FAERS Safety Report 16192131 (Version 3)
Quarter: 2019Q2

REPORT INFORMATION
  Report Type: Spontaneous
  Country: IE (occurrence: IE)
  Receive Date: 20190412
  Receipt Date: 20190612
  Transmission Date: 20190711
  Serious: Yes (Hospitalization, Disabling, Other)
  Sender: FDA-Public Use
  Company Number: IE-PFIZER INC-2019150658

PATIENT
  Age: 91 Year
  Sex: Female

DRUGS (10)
  1. TRAVATAN [Concomitant]
     Active Substance: TRAVOPROST
     Dosage: UNK, 1X/DAY (ONE AT NOCTE)
  2. NEURONTIN [Suspect]
     Active Substance: GABAPENTIN
     Dosage: 100 MG, DAILY (EVERY 24 HOURS)
     Route: 048
  3. SEROQUEL [Suspect]
     Active Substance: QUETIAPINE FUMARATE
     Dosage: 12.5 MG, UNK
     Route: 048
     Dates: end: 20180508
  4. NEURONTIN [Suspect]
     Active Substance: GABAPENTIN
     Dosage: 1 DF, 2X/DAY
     Route: 048
  5. HALOPERIDOL. [Suspect]
     Active Substance: HALOPERIDOL
     Dosage: UNK
  6. SENNA [SENNOSIDE A+B] [Concomitant]
     Dosage: TWO AT NIGHT
     Route: 048
  7. SEROQUEL [Suspect]
     Active Substance: QUETIAPINE FUMARATE
     Dosage: 125 MG, DAILY (75MG NOCTE, 50MG MANE)
     Route: 048
  8. DONEPEZIL. [Concomitant]
     Active Substance: DONEPEZIL
     Dosage: 10 MG, 1X/DAY (NOCTE)
     Route: 048
  9. LACTULOSE. [Concomitant]
     Active Substance: LACTULOSE
     Dosage: 15 ML, 3X/DAY EVERY 8 HOURS
     Route: 048
  10. MEMANTINE. [Concomitant]
     Active Substance: MEMANTINE
     Dosage: 20 MG, 1X/DAY (NOCTE)
     Route: 048

REACTIONS (19)
  - Contusion [Not Recovered/Not Resolved]
  - Emotional distress [Recovering/Resolving]
  - Coma [Recovering/Resolving]
  - Wound haemorrhage [Not Recovered/Not Resolved]
  - Skin injury [Not Recovered/Not Resolved]
  - General physical health deterioration [Recovering/Resolving]
  - Emotional disorder [Recovering/Resolving]
  - Wound [Not Recovered/Not Resolved]
  - Depressed mood [Not Recovered/Not Resolved]
  - Eye discharge [Not Recovered/Not Resolved]
  - Tremor [Not Recovered/Not Resolved]
  - Dysarthria [Recovering/Resolving]
  - Mobility decreased [Not Recovered/Not Resolved]
  - Speech disorder [Recovering/Resolving]
  - Somnolence [Not Recovered/Not Resolved]
  - Loss of personal independence in daily activities [Not Recovered/Not Resolved]
  - Skin exfoliation [Not Recovered/Not Resolved]
  - Condition aggravated [Not Recovered/Not Resolved]
  - Coordination abnormal [Not Recovered/Not Resolved]

NARRATIVE: CASE EVENT DATE: 201807
